FAERS Safety Report 7607091-5 (Version None)
Quarter: 2011Q3

REPORT INFORMATION
  Report Type: 
  Country: None (occurrence: None)
  Receive Date: 20110713
  Receipt Date: 20110630
  Transmission Date: 20111222
  Serious: Yes (Hospitalization)
  Sender: FDA-Public Use
  Company Number: AT-UCBSA-036420

PATIENT
  Age: 44 Year
  Sex: Male

DRUGS (1)
  1. KEPPRA [Suspect]
     Indication: EPILEPSY
     Dosage: KEPPRA RECEIVED ONCE  UP TO THE ONSET OF EVENT
     Route: 042

REACTIONS (1)
  - IMPULSIVE BEHAVIOUR [None]
